FAERS Safety Report 4586371-4 (Version None)
Quarter: 2005Q1

REPORT INFORMATION
  Report Type: 
  Country: None (occurrence: None)
  Receive Date: 20050125
  Receipt Date: 20040907
  Transmission Date: 20050727
  Serious: No
  Sender: FDA-Public Use
  Company Number: USA040977499

PATIENT
  Age: 77 Year
  Sex: Female
  Weight: 105 kg

DRUGS (1)
  1. FORTEO [Suspect]
     Indication: OSTEOPOROSIS
     Dosage: 20 UG/1 DAY
     Dates: start: 20040825, end: 20040901

REACTIONS (3)
  - DIZZINESS [None]
  - VERTIGO [None]
  - VISUAL DISTURBANCE [None]
